FAERS Safety Report 9231091 (Version 1)
Quarter: 2013Q2

REPORT INFORMATION
  Report Type: Report from Study
  Country: IL (occurrence: IL)
  Receive Date: 20130415
  Receipt Date: 20130415
  Transmission Date: 20140414
  Serious: Yes (Life-Threatening, Other)
  Sender: FDA-Public Use
  Company Number: IL-ROXANE LABORATORIES, INC.-2008-DE-07750GD

PATIENT
  Age: 23 Year
  Sex: Male

DRUGS (10)
  1. MORPHINE [Suspect]
     Indication: PAIN
     Dosage: 2.5 MG/H
     Route: 042
  2. MORPHINE [Suspect]
     Dosage: 10 MG
  3. MORPHINE [Suspect]
     Dosage: 60 MG
  4. MIDAZOLAM HCL [Suspect]
     Indication: SEDATIVE THERAPY
  5. MEPERIDINE [Suspect]
     Indication: PAIN
     Dosage: 100 - 300 MG
     Route: 030
  6. OXYCODONE [Suspect]
     Indication: PAIN
     Dosage: 60 MG
     Route: 048
  7. CARBAMAZEPINE [Suspect]
     Indication: DEPRESSED MOOD
     Dosage: 800 MG
  8. AMITRIPTYLINE [Suspect]
     Indication: HYPERAESTHESIA
     Dosage: 50 MG
  9. KETAMINE [Concomitant]
     Indication: PAIN
     Dosage: 500 MG
     Route: 042
  10. CLONAZEPAM [Concomitant]
     Indication: PAIN
     Dosage: 1.5 MG

REACTIONS (8)
  - Apnoea [Recovered/Resolved]
  - Drug ineffective [Recovered/Resolved]
  - Drug dependence [Unknown]
  - Drug tolerance [Recovered/Resolved]
  - Central pain syndrome [Recovered/Resolved]
  - Abnormal behaviour [Recovered/Resolved]
  - Bradypnoea [Unknown]
  - Depression [Unknown]
